FAERS Safety Report 20433757 (Version 3)
Quarter: 2022Q1

REPORT INFORMATION
  Report Type: Spontaneous
  Country: CO (occurrence: CO)
  Receive Date: 20220205
  Receipt Date: 20220313
  Transmission Date: 20220424
  Serious: Yes (Other)
  Sender: FDA-Public Use
  Company Number: CO-AMGEN-COLSP2021157891

PATIENT
  Age: 54 Year
  Sex: Female
  Weight: 72 kg

DRUGS (8)
  1. MVASI [Suspect]
     Active Substance: BEVACIZUMAB-AWWB
     Indication: Glioma
     Dosage: 680 MILLIGRAM, QD
     Route: 042
     Dates: start: 20210626
  2. MVASI [Suspect]
     Active Substance: BEVACIZUMAB-AWWB
     Indication: Astrocytoma malignant
     Dosage: 728 MILLIGRAM QD
     Route: 042
  3. MVASI [Suspect]
     Active Substance: BEVACIZUMAB-AWWB
     Dosage: 696 MILLIGRAM QD
     Route: 042
  4. LEVETIRACETAM [Concomitant]
     Active Substance: LEVETIRACETAM
     Indication: Glioma
     Dosage: 1000 MILLIGRAM, BID
     Route: 048
     Dates: start: 20210626
  5. ACETAMINOPHEN\HYDROCODONE [Concomitant]
     Active Substance: ACETAMINOPHEN\HYDROCODONE
     Indication: Pain
     Dosage: UNK UNK, Q8H
     Dates: start: 20210927
  6. CARMUSTINE [Concomitant]
     Active Substance: CARMUSTINE
     Indication: Astrocytoma malignant
     Dosage: 80 MILLIGRAM/SQ. METER, Q8WK (1, 2 CYCLES)
     Dates: start: 20210626
  7. CARMUSTINE [Concomitant]
     Active Substance: CARMUSTINE
     Dosage: 74 MILLIGRAM, QD (FOR 3 DAYS)
     Route: 042
  8. LOSARTAN [Concomitant]
     Active Substance: LOSARTAN
     Dosage: 50 MILLIGRAM PER MILLILITRE, QD

REACTIONS (8)
  - Papillary thyroid cancer [Unknown]
  - Abdominal pain upper [Recovering/Resolving]
  - Language disorder [Not Recovered/Not Resolved]
  - Off label use [Not Recovered/Not Resolved]
  - Mobility decreased [Not Recovered/Not Resolved]
  - Nervous system disorder [Not Recovered/Not Resolved]
  - Asthenia [Unknown]
  - Headache [Recovering/Resolving]

NARRATIVE: CASE EVENT DATE: 20210626
